FAERS Safety Report 25248264 (Version 2)
Quarter: 2025Q2

REPORT INFORMATION
  Report Type: Report from Study
  Country: US (occurrence: US)
  Receive Date: 20250429
  Receipt Date: 20250516
  Transmission Date: 20250717
  Serious: No
  Sender: DECIPHERA PHARMACEUTICALS
  Company Number: US-DECIPHERA PHARMACEUTICALS LLC-2025US000364

PATIENT
  Age: 42 Year
  Sex: Female

DRUGS (3)
  1. ROMVIMZA [Suspect]
     Active Substance: VIMSELTINIB
     Indication: Giant cell tumour of tendon sheath
     Dates: start: 202503
  2. ROMVIMZA [Suspect]
     Active Substance: VIMSELTINIB
     Dosage: 30 MILLIGRAM, TWICE WEEKLY
     Route: 048
     Dates: start: 20250417
  3. TURALIO [Concomitant]
     Active Substance: PEXIDARTINIB HYDROCHLORIDE
     Indication: Product used for unknown indication

REACTIONS (5)
  - Swelling face [Unknown]
  - Acne [Unknown]
  - Thirst [Unknown]
  - Pruritus [Unknown]
  - Peripheral swelling [Unknown]

NARRATIVE: CASE EVENT DATE: 20250101
